FAERS Safety Report 6568655-3 (Version None)
Quarter: 2010Q1

REPORT INFORMATION
  Report Type: 
  Country: None (occurrence: None)
  Receive Date: 20100203
  Receipt Date: 20100121
  Transmission Date: 20100710
  Serious: Yes (Other)
  Sender: FDA-Public Use
  Company Number: PHEH2010US01118

PATIENT
  Sex: Female

DRUGS (3)
  1. MYFORTIC [Suspect]
     Dosage: UNK
     Dates: start: 20091001
  2. NEORAL [Suspect]
  3. ANTIHYPERTENSIVE DRUGS [Concomitant]

REACTIONS (3)
  - BLOOD CREATININE DECREASED [None]
  - DRUG INEFFECTIVE [None]
  - RENAL FAILURE [None]
